FAERS Safety Report 4542062-7 (Version None)
Quarter: 2004Q4

REPORT INFORMATION
  Report Type: 
  Country: None (occurrence: None)
  Receive Date: 20041230
  Receipt Date: 20030605
  Transmission Date: 20050328
  Serious: Yes (Hospitalization, Disabling, Other)
  Sender: FDA-Public Use
  Company Number: US-MERCK-0306USA00759

PATIENT
  Age: 54 Year
  Sex: Male
  Weight: 120 kg

DRUGS (28)
  1. VIOXX [Suspect]
     Indication: BACK PAIN
     Route: 048
     Dates: start: 20000401, end: 20010201
  2. VIOXX [Suspect]
     Route: 048
     Dates: start: 20010904
  3. VIOXX [Suspect]
     Route: 048
     Dates: start: 20010226, end: 20010901
  4. VIOXX [Suspect]
     Route: 048
     Dates: start: 20000104
  5. VIOXX [Suspect]
     Indication: PAIN IN EXTREMITY
     Route: 048
     Dates: start: 20000401, end: 20010201
  6. VIOXX [Suspect]
     Route: 048
     Dates: start: 20010904
  7. VIOXX [Suspect]
     Route: 048
     Dates: start: 20010226, end: 20010901
  8. VIOXX [Suspect]
     Route: 048
     Dates: start: 20000104
  9. BUSPAR [Concomitant]
     Route: 048
     Dates: start: 19990402, end: 20000510
  10. LORTAB [Concomitant]
     Route: 048
     Dates: start: 19990410, end: 20001102
  11. LORTAB [Concomitant]
     Route: 048
  12. ZIAC [Concomitant]
     Indication: HYPERTENSION
     Route: 048
     Dates: start: 20000410, end: 20010225
  13. VICODIN [Concomitant]
     Indication: PAIN IN EXTREMITY
     Route: 048
     Dates: start: 20010225
  14. LIPITOR [Concomitant]
     Route: 048
     Dates: start: 20010707
  15. VALIUM [Concomitant]
     Route: 048
     Dates: start: 20010226, end: 20010927
  16. TALWIN [Concomitant]
     Route: 048
     Dates: start: 20010904, end: 20010927
  17. ULTRAM [Concomitant]
     Route: 048
     Dates: start: 20010904, end: 20010912
  18. SKELAXIN [Concomitant]
     Route: 048
     Dates: start: 20010927, end: 20011010
  19. TENYL [Concomitant]
     Route: 065
     Dates: start: 20010906, end: 20011011
  20. CLARITIN [Concomitant]
     Route: 065
  21. SERZONE [Concomitant]
     Route: 065
  22. CARISOPRODOL [Concomitant]
     Route: 065
  23. ACETAMINOPHEN AND PROPOXYPHENE HYDROCHLORIDE [Concomitant]
     Route: 065
  24. MOBIC [Concomitant]
     Route: 065
  25. HYDROCODONE HYDROCHLORIDE [Concomitant]
     Route: 065
  26. ALTACE [Concomitant]
     Route: 065
  27. TOPROL-XL [Concomitant]
     Route: 065
  28. ASPIRIN [Concomitant]
     Route: 065

REACTIONS (30)
  - ACCIDENT AT WORK [None]
  - ACQUIRED DIAPHRAGMATIC EVENTRATION [None]
  - ANGINA PECTORIS [None]
  - ATRIAL FIBRILLATION [None]
  - BACK PAIN [None]
  - BLOOD PRESSURE INCREASED [None]
  - CARDIAC ARREST [None]
  - CHEST DISCOMFORT [None]
  - CHEST PAIN [None]
  - CONVULSION [None]
  - CORONARY ARTERY DISEASE [None]
  - CORONARY ARTERY OCCLUSION [None]
  - DYSPNOEA EXERTIONAL [None]
  - ELECTROCARDIOGRAM P WAVE ABNORMAL [None]
  - FEELING ABNORMAL [None]
  - INTERVERTEBRAL DISC DISORDER [None]
  - INTERVERTEBRAL DISC PROTRUSION [None]
  - LOSS OF CONSCIOUSNESS [None]
  - MUSCULOSKELETAL DISCOMFORT [None]
  - MYOCARDIAL INFARCTION [None]
  - NODAL RHYTHM [None]
  - NUCLEAR MAGNETIC RESONANCE IMAGING ABNORMAL [None]
  - RADICULAR PAIN [None]
  - ROAD TRAFFIC ACCIDENT [None]
  - SPINAL COLUMN STENOSIS [None]
  - SPINAL OSTEOARTHRITIS [None]
  - TREMOR [None]
  - VENTRICULAR EXTRASYSTOLES [None]
  - VENTRICULAR FIBRILLATION [None]
  - VENTRICULAR HYPOKINESIA [None]
